FAERS Safety Report 6326016-6 (Version None)
Quarter: 2009Q3

REPORT INFORMATION
  Report Type: 
  Country: None (occurrence: None)
  Receive Date: 20090824
  Receipt Date: 20090814
  Transmission Date: 20100115
  Serious: Yes (Death)
  Sender: FDA-Public Use
  Company Number: US-ROCHE-650624

PATIENT
  Sex: Female
  Weight: 49.9 kg

DRUGS (1)
  1. CAPECITABINE [Suspect]
     Indication: BREAST CANCER
     Dosage: 02 TABLETS TWICE DAILY; STRENGTH (500 MG + 150 MG)
     Route: 048
     Dates: start: 20090602, end: 20090811

REACTIONS (1)
  - DEATH [None]
